FAERS Safety Report 18833797 (Version 1)
Quarter: 2021Q1

REPORT INFORMATION
  Report Type: Spontaneous
  Country: US (occurrence: US)
  Receive Date: 20210203
  Receipt Date: 20210203
  Transmission Date: 20210419
  Serious: No
  Sender: FDA-Public Use
  Company Number: US-ALLERGAN-2035668US

PATIENT
  Sex: Female
  Weight: 79.37 kg

DRUGS (3)
  1. BOTOX COSMETIC [Suspect]
     Active Substance: ONABOTULINUMTOXINA
     Dosage: UNK UNK, SINGLE
     Dates: start: 20200903, end: 20200903
  2. BOTOX COSMETIC [Suspect]
     Active Substance: ONABOTULINUMTOXINA
     Indication: SKIN WRINKLING
     Dosage: UNK UNK, SINGLE
     Dates: start: 20200903, end: 20200903
  3. BOTOX COSMETIC [Suspect]
     Active Substance: ONABOTULINUMTOXINA
     Indication: SKIN WRINKLING
     Dosage: 42 UNITS, SINGLE
     Dates: start: 20200903, end: 20200903

REACTIONS (3)
  - Brow ptosis [Not Recovered/Not Resolved]
  - Contusion [Recovered/Resolved]
  - Injection site pain [Recovered/Resolved]
